FAERS Safety Report 5772933-5 (Version None)
Quarter: 2008Q2

REPORT INFORMATION
  Report Type: 
  Country: None (occurrence: None)
  Receive Date: 20080613
  Receipt Date: 20080604
  Transmission Date: 20081010
  Serious: Yes (Other)
  Sender: FDA-Public Use
  Company Number: GB-PFIZER INC-2008047226

PATIENT
  Age: 76 Year
  Sex: Female
  Weight: 49.5 kg

DRUGS (1)
  1. DOSTINEX [Suspect]
     Indication: PARKINSON'S DISEASE
     Route: 048
     Dates: start: 20050901, end: 20060601

REACTIONS (4)
  - AORTIC VALVE INCOMPETENCE [None]
  - HALLUCINATION [None]
  - MITRAL VALVE INCOMPETENCE [None]
  - TRICUSPID VALVE INCOMPETENCE [None]
